FAERS Safety Report 12088192 (Version 1)
Quarter: 2016Q1

REPORT INFORMATION
  Report Type: Spontaneous
  Country: US (occurrence: None)
  Receive Date: 20160216
  Receipt Date: 20160216
  Transmission Date: 20160526
  Serious: Yes (Other)
  Sender: FDA-Public Use
  Company Number: None

PATIENT
  Age: 29 Year
  Sex: Female
  Weight: 85.73 kg

DRUGS (6)
  1. INSULIN PUMP [Concomitant]
     Active Substance: INSULIN NOS
  2. IBUPROFEN. [Concomitant]
     Active Substance: IBUPROFEN
  3. VENLAFAXINE [Suspect]
     Active Substance: VENLAFAXINE HYDROCHLORIDE
     Indication: DEPRESSION
     Dosage: 1 PILL ONCE DAILY TAKEN BY MOUTH
     Route: 048
     Dates: start: 20150501
  4. NOVOLOG [Concomitant]
     Active Substance: INSULIN ASPART
  5. VENLAFAXINE [Suspect]
     Active Substance: VENLAFAXINE HYDROCHLORIDE
     Indication: ANXIETY
     Dosage: 1 PILL ONCE DAILY TAKEN BY MOUTH
     Route: 048
     Dates: start: 20150501
  6. WELLBUTRIN SR [Concomitant]
     Active Substance: BUPROPION HYDROCHLORIDE

REACTIONS (10)
  - Suicidal ideation [None]
  - Anxiety [None]
  - Anhedonia [None]
  - Syncope [None]
  - Palpitations [None]
  - Crying [None]
  - Diarrhoea [None]
  - Agitation [None]
  - Dizziness [None]
  - Fatigue [None]

NARRATIVE: CASE EVENT DATE: 20160212
